FAERS Safety Report 6755931-4 (Version None)
Quarter: 2010Q2

REPORT INFORMATION
  Report Type: 
  Country: None (occurrence: None)
  Receive Date: 20100603
  Receipt Date: 20100603
  Transmission Date: 20101027
  Serious: Yes (Life-Threatening, Hospitalization)
  Sender: FDA-Public Use
  Company Number: None

PATIENT
  Sex: Female
  Weight: 90.7194 kg

DRUGS (1)
  1. ACIPHEX [Suspect]
     Indication: SUPRAVENTRICULAR TACHYCARDIA
     Dosage: 1 PER DAY PO
     Route: 048
     Dates: start: 20040201, end: 20040331

REACTIONS (6)
  - DRUG INEFFECTIVE [None]
  - DYSPEPSIA [None]
  - MALAISE [None]
  - MIDDLE INSOMNIA [None]
  - RETCHING [None]
  - SUPRAVENTRICULAR TACHYCARDIA [None]
